FAERS Safety Report 10785839 (Version 1)
Quarter: 2015Q1

REPORT INFORMATION
  Report Type: Spontaneous
  Country: US (occurrence: None)
  Receive Date: 20150210
  Receipt Date: 20150210
  Transmission Date: 20150721
  Serious: No
  Sender: FDA-Public Use
  Company Number: None

PATIENT
  Age: 48 Year
  Sex: Male
  Weight: 80.29 kg

DRUGS (1)
  1. ZOLPIDEM ER [Suspect]
     Active Substance: ZOLPIDEM\ZOLPIDEM TARTRATE
     Indication: INSOMNIA
     Dosage: 1
     Route: 048
     Dates: start: 20150206, end: 20150207

REACTIONS (2)
  - Agitation [None]
  - Loss of consciousness [None]

NARRATIVE: CASE EVENT DATE: 20150206
